FAERS Safety Report 7370239-4 (Version None)
Quarter: 2011Q1

REPORT INFORMATION
  Report Type: 
  Country: None (occurrence: None)
  Receive Date: 20110323
  Receipt Date: 20110316
  Transmission Date: 20110831
  Serious: Yes (Death)
  Sender: FDA-Public Use
  Company Number: PHHY2011BE22690

PATIENT
  Sex: Female

DRUGS (5)
  1. LIPITOR [Concomitant]
     Indication: HYPERCHOLESTEROLAEMIA
     Dosage: 40 MG
     Dates: start: 20100325
  2. AUGMENTIN '125' [Concomitant]
     Indication: PYREXIA
     Dosage: UNK
     Dates: start: 20101017, end: 20101019
  3. CYCLOSPORINE [Suspect]
     Dosage: 100 MG, QD
     Route: 048
     Dates: start: 20091217
  4. MEDROL [Concomitant]
     Indication: IMMUNOSUPPRESSION
     Dosage: 4 MG
     Dates: start: 20090107
  5. INSULIN [Concomitant]
     Indication: DIABETES MELLITUS
     Dosage: 3XD
     Dates: start: 20081125

REACTIONS (1)
  - SEPTIC SHOCK [None]
